FAERS Safety Report 8997904 (Version 2)
Quarter: 2013Q1

REPORT INFORMATION
  Report Type: Spontaneous
  Country: IT (occurrence: IT)
  Receive Date: 20130104
  Receipt Date: 20130205
  Transmission Date: 20140127
  Serious: Yes (Hospitalization, Other)
  Sender: FDA-Public Use
  Company Number: IT-BRISTOL-MYERS SQUIBB COMPANY-17249103

PATIENT
  Age: 81 Year
  Sex: Male

DRUGS (7)
  1. COUMADIN TABS 5 MG [Suspect]
     Indication: DEEP VEIN THROMBOSIS
     Dosage: INTERRUPTED ON 07DEC2012
     Route: 048
     Dates: start: 20121204
  2. LEVOTHYROXINE [Interacting]
  3. ALLOPURINOL [Interacting]
  4. HEPARIN [Concomitant]
     Dates: start: 20111204, end: 20121204
  5. ZYLORIC [Concomitant]
  6. EUTIROX [Concomitant]
  7. BLOPRESID [Concomitant]

REACTIONS (3)
  - Melaena [Unknown]
  - Anaemia [Unknown]
  - Drug interaction [Unknown]
